FAERS Safety Report 5169211-4 (Version None)
Quarter: 2006Q4

REPORT INFORMATION
  Report Type: 
  Country: None (occurrence: None)
  Receive Date: 20061204
  Receipt Date: 20061127
  Transmission Date: 20070319
  Serious: Yes (Other)
  Sender: FDA-Public Use
  Company Number: 2006110950

PATIENT
  Age: 82 Year
  Sex: Female
  Weight: 53.0709 kg

DRUGS (7)
  1. DETROL LA [Suspect]
     Indication: INCONTINENCE
     Dosage: 2 MG (2 MG, 1 IN 1 D), ORAL
     Route: 048
  2. ARICEPT [Concomitant]
  3. SINEMET [Concomitant]
  4. MIRALAX [Concomitant]
  5. LUMIGAN [Concomitant]
  6. COSOPT [Concomitant]
  7. ALPHAGAN [Concomitant]

REACTIONS (3)
  - COGNITIVE DISORDER [None]
  - DEMENTIA [None]
  - THINKING ABNORMAL [None]
